FAERS Safety Report 10038927 (Version 1)
Quarter: 2014Q1

REPORT INFORMATION
  Report Type: Spontaneous
  Country: US (occurrence: US)
  Receive Date: 20140326
  Receipt Date: 20140326
  Transmission Date: 20141002
  Serious: Yes (Hospitalization, Other)
  Sender: FDA-Public Use
  Company Number: US-GILEAD-2014-0097809

PATIENT
  Sex: Female

DRUGS (2)
  1. LETAIRIS [Suspect]
     Indication: PULMONARY HYPERTENSION
     Dosage: 5 MG, QD
     Route: 065
     Dates: start: 20120508
  2. LETAIRIS [Suspect]
     Dosage: 10 MG, UNK
     Route: 065

REACTIONS (4)
  - Pneumonia [Unknown]
  - Fluid retention [Unknown]
  - Asthenia [Unknown]
  - Dyspnoea [Unknown]
